FAERS Safety Report 20047451 (Version 4)
Quarter: 2022Q1

REPORT INFORMATION
  Report Type: Spontaneous
  Country: RU (occurrence: RU)
  Receive Date: 20211109
  Receipt Date: 20220106
  Transmission Date: 20220424
  Serious: Yes (Other)
  Sender: FDA-Public Use
  Company Number: RU-LUPIN PHARMACEUTICALS INC.-2021-21584

PATIENT
  Sex: Female

DRUGS (14)
  1. METHYLPREDNISOLONE [Suspect]
     Active Substance: METHYLPREDNISOLONE
     Indication: Familial mediterranean fever
     Dosage: 16 MILLIGRAM, QD
     Route: 065
  2. METHYLPREDNISOLONE [Suspect]
     Active Substance: METHYLPREDNISOLONE
     Indication: Pyrexia
     Dosage: 20 MILLIGRAM, QD
     Route: 065
  3. METHYLPREDNISOLONE [Suspect]
     Active Substance: METHYLPREDNISOLONE
     Indication: Myalgia
     Dosage: 1500 MILLIGRAM IN TOTAL (PULSE THERAPY AND GRADUALLY STOPPED)
     Route: 065
  4. COLCHICINE [Suspect]
     Active Substance: COLCHICINE
     Indication: Familial mediterranean fever
     Dosage: 1 MILLIGRAM, QD (BEFORE PREGNANCY))
     Route: 065
     Dates: start: 2008
  5. COLCHICINE [Suspect]
     Active Substance: COLCHICINE
     Indication: Condition aggravated
     Dosage: 1.5 MILLIGRAM, QD (BEFORE PREGNANCY)
     Route: 065
  6. COLCHICINE [Suspect]
     Active Substance: COLCHICINE
     Dosage: 2 MILLIGRAM, QD (AT 22 WEEKS)
     Route: 065
     Dates: start: 2018
  7. COLCHICINE [Suspect]
     Active Substance: COLCHICINE
     Dosage: 3 MILLIGRAM, QD
     Route: 065
  8. COLCHICINE [Suspect]
     Active Substance: COLCHICINE
     Dosage: 1.5 MILLIGRAM, QD
     Route: 065
  9. URSODIOL [Suspect]
     Active Substance: URSODIOL
     Indication: Cholestasis
     Dosage: UNK
     Route: 065
  10. URSODIOL [Suspect]
     Active Substance: URSODIOL
     Dosage: 1000 MILLIGRAM, QD (RAPID DOSE TITRATION)
     Route: 065
  11. ACETAMINOPHEN [Suspect]
     Active Substance: ACETAMINOPHEN
     Indication: Pyrexia
     Dosage: 500 MILLIGRAM, TID
     Route: 065
  12. ACETAMINOPHEN [Suspect]
     Active Substance: ACETAMINOPHEN
     Indication: Familial mediterranean fever
     Dosage: UNK UNK, QD (UP TO 4 GRAM PER DAY)
     Route: 042
  13. ACETAMINOPHEN [Suspect]
     Active Substance: ACETAMINOPHEN
     Indication: Myalgia
  14. DEXAMETHASONE [Suspect]
     Active Substance: DEXAMETHASONE
     Indication: Prophylaxis
     Dosage: UNK
     Route: 065

REACTIONS (3)
  - Premature delivery [Unknown]
  - Exposure during pregnancy [Unknown]
  - Twin pregnancy [Unknown]
